FAERS Safety Report 10530963 (Version 1)
Quarter: 2014Q4

REPORT INFORMATION
  Report Type: Spontaneous
  Country: US (occurrence: None)
  Receive Date: 20141020
  Receipt Date: 20141020
  Transmission Date: 20150528
  Serious: No
  Sender: FDA-Public Use
  Company Number: None

PATIENT

DRUGS (2)
  1. LEVETIRACETAM (LEVETIRACETAM) 500 MG [Suspect]
     Active Substance: LEVETIRACETAM
     Dosage: TABLET ORAL 500 MG BOTTLE 120 TABLETS NDC 68001-117-07
     Route: 048
  2. LEVETIRACETAM (LEVETIRACETAM ER) LUPIN PHARMACEUTICALS, INC. 500 MG [Suspect]
     Active Substance: LEVETIRACETAM
     Dosage: TABLET ORAL 500 MG BOTTLE 60 TABLETS NDC 68180-117-07
     Route: 048

REACTIONS (3)
  - Product barcode issue [None]
  - Circumstance or information capable of leading to device use error [None]
  - Product packaging confusion [None]
